FAERS Safety Report 24031965 (Version 1)
Quarter: 2024Q2

REPORT INFORMATION
  Report Type: Spontaneous
  Country: US (occurrence: US)
  Receive Date: 20240629
  Receipt Date: 20240629
  Transmission Date: 20240716
  Serious: Yes (Hospitalization)
  Sender: FDA-Public Use
  Company Number: US-AMGEN-USASP2024124305

PATIENT
  Age: 45 Year
  Sex: Male

DRUGS (2)
  1. PREDNISONE [Suspect]
     Active Substance: PREDNISONE
     Indication: Interstitial lung disease
     Dosage: UNK, TAPER
     Route: 065
  2. OXYGEN [Concomitant]
     Active Substance: OXYGEN
     Dosage: UNK, 2-4 L

REACTIONS (9)
  - Arthralgia [Unknown]
  - Adenocarcinoma gastric [Unknown]
  - Acute respiratory failure [Unknown]
  - Haemoglobin abnormal [Unknown]
  - Platelet count abnormal [Unknown]
  - Fibrin D dimer increased [Unknown]
  - Blood lactate dehydrogenase abnormal [Unknown]
  - Diplopia [Unknown]
  - Dizziness [Unknown]
